FAERS Safety Report 17344217 (Version 1)
Quarter: 2020Q1

REPORT INFORMATION
  Report Type: Spontaneous
  Country: PL (occurrence: PL)
  Receive Date: 20200129
  Receipt Date: 20200129
  Transmission Date: 20200409
  Serious: Yes (Hospitalization, Other)
  Sender: FDA-Public Use
  Company Number: PL-MYLANLABS-2020M1010325

PATIENT
  Age: 60 Year
  Sex: Female

DRUGS (16)
  1. RITUXIMAB. [Suspect]
     Active Substance: RITUXIMAB
     Dosage: FIRST THERAPY LINE (R-FC); 1ST DAY IN THE SECOND CYCLE
  2. RITUXIMAB. [Suspect]
     Active Substance: RITUXIMAB
     Dosage: FIRST LINE OF THERAPY R-CD; 4 THE SAME 1 DAY THERAPY CYCLES
  3. CYCLOPHOSPHAMIDE. [Suspect]
     Active Substance: CYCLOPHOSPHAMIDE
     Dosage: SECOND LINE OF THERAPY R-CD; 6 THE SAME 1-DAY THERAPY CYCLES
  4. RITUXIMAB. [Suspect]
     Active Substance: RITUXIMAB
     Dosage: SECOND LINE OF THERAPY R-CD; 6 THE SAME 1-DAY THERAPY CYCLES
  5. DEXAMETHASONE. [Suspect]
     Active Substance: DEXAMETHASONE
     Dosage: SECOND THERAPY LINE R-CD; 6 THE SAME 1 DAY THERAPY CYCLES
  6. FLUDARABINE [Suspect]
     Active Substance: FLUDARABINE PHOSPHATE
     Indication: CHRONIC LYMPHOCYTIC LEUKAEMIA
     Dosage: FIRST THERAPY LINE (R-FC); 1-3 DAYS IN THE FIRST CYCLE
  7. DEXAMETHASONE. [Suspect]
     Active Substance: DEXAMETHASONE
     Indication: CHRONIC LYMPHOCYTIC LEUKAEMIA
     Dosage: FIRST LINE OF THERAPY R-CD; 4 THE SAME 1 DAY THERAPY CYCLES
  8. METHYLPREDNISOLONE. [Concomitant]
     Active Substance: METHYLPREDNISOLONE
     Indication: CHRONIC LYMPHOCYTIC LEUKAEMIA
     Dosage: UNK
  9. FLUDARABINE [Suspect]
     Active Substance: FLUDARABINE PHOSPHATE
     Dosage: FIRST THERAPY LINE (R-FC); 1-3 DAYS IN THE THIRD CYCLE
  10. CYCLOPHOSPHAMIDE. [Suspect]
     Active Substance: CYCLOPHOSPHAMIDE
     Indication: CHRONIC LYMPHOCYTIC LEUKAEMIA
     Dosage: FIRST THERAPY LINE (R-FC); 1-3 DAYS IN THE FIRST CYCLE
  11. CYCLOPHOSPHAMIDE. [Suspect]
     Active Substance: CYCLOPHOSPHAMIDE
     Dosage: FIRST THERAPY LINE (R-FC); 1-3 DAYS IN THE THIRD CYCLE
  12. CYCLOPHOSPHAMIDE. [Suspect]
     Active Substance: CYCLOPHOSPHAMIDE
     Dosage: FIRST LINE OF THERAPY R-CD; 4 THE SAME 1 DAY THERAPY CYCLES
  13. FLUDARABINE [Suspect]
     Active Substance: FLUDARABINE PHOSPHATE
     Dosage: FIRST THERAPY LINE (R-FC); 1-3 DAYS IN THE SECOND CYCLE
  14. RITUXIMAB. [Suspect]
     Active Substance: RITUXIMAB
     Dosage: FIRST THERAPY LINE (R-FC); 1ST DAY IN THE THIRD CYCLE
  15. RITUXIMAB. [Suspect]
     Active Substance: RITUXIMAB
     Indication: CHRONIC LYMPHOCYTIC LEUKAEMIA
     Dosage: FIRST THERAPY LINE (R-FC); 1ST DAY IN THE FIRST CYCLE
  16. CYCLOPHOSPHAMIDE. [Suspect]
     Active Substance: CYCLOPHOSPHAMIDE
     Dosage: FIRST THERAPY LINE (R-FC); 1-3 DAYS IN THE SECOND CYCLE

REACTIONS (2)
  - Steroid diabetes [Unknown]
  - Pulmonary embolism [Unknown]
